FAERS Safety Report 9156896 (Version 2)
Quarter: 2013Q2

REPORT INFORMATION
  Report Type: Spontaneous
  Country: BR (occurrence: BR)
  Receive Date: 20130312
  Receipt Date: 20130415
  Transmission Date: 20140414
  Serious: Yes (Hospitalization)
  Sender: FDA-Public Use
  Company Number: PHHY2013BR023315

PATIENT
  Age: 84 Year
  Sex: Female

DRUGS (3)
  1. DIOVAN AMLO FIX [Suspect]
     Indication: HYPERTENSION
     Dosage: 1 DF(160/5MG), DAILY
     Route: 048
  2. LEVOTIROXIN [Concomitant]
     Indication: THYROID DISORDER
     Dosage: 1 DF (88UG), DAILY
     Route: 048
  3. ALOPURINOL [Concomitant]
     Indication: OSTEOARTHRITIS
     Dosage: 1 DF(100MG), DAILY
     Route: 048

REACTIONS (2)
  - Ovarian cyst [Recovered/Resolved]
  - Bile duct stone [Recovered/Resolved]
